FAERS Safety Report 13312596 (Version 3)
Quarter: 2019Q4

REPORT INFORMATION
  Report Type: Spontaneous
  Country: US (occurrence: US)
  Receive Date: 20170309
  Receipt Date: 20191226
  Transmission Date: 20200122
  Serious: Yes (Other)
  Sender: FDA-Public Use
  Company Number: US-PFIZER INC-2017103961

PATIENT
  Age: 58 Year
  Sex: Female

DRUGS (23)
  1. ROSUVASTATIN. [Suspect]
     Active Substance: ROSUVASTATIN
     Dosage: 20 MG, 1X/DAY
  2. PREMARIN [Concomitant]
     Active Substance: ESTROGENS, CONJUGATED
     Dosage: UNK (INSERT VAGINALLY AT BETIME THREE TIMES PER WEEK)
     Route: 067
  3. EFFEXOR XR [Concomitant]
     Active Substance: VENLAFAXINE HYDROCHLORIDE
     Dosage: 225 MG, 3X/DAY
     Route: 048
  4. PERCOCET [Concomitant]
     Active Substance: ACETAMINOPHEN\OXYCODONE HYDROCHLORIDE
     Indication: PAIN
     Dosage: 1 DF, EVERY 6 HOURS (5 MG/325 MG)
     Route: 048
  5. AUGMENTIN [Concomitant]
     Active Substance: AMOXICILLIN\CLAVULANATE POTASSIUM
     Dosage: 1 DF, 2X/DAY (STRENGTH: 500 MG/125 MG)
  6. CIPRO [Concomitant]
     Active Substance: CIPROFLOXACIN HYDROCHLORIDE
     Dosage: 1 DF, 2X/DAY
     Route: 048
  7. ROBITUSSIN A-C [Concomitant]
     Indication: COUGH
     Dosage: 1-2 TSP Q 4-6 HRS AS NEEDED (100-10 MG)
     Route: 048
  8. LIPITOR [Suspect]
     Active Substance: ATORVASTATIN CALCIUM
     Indication: CARDIOVASCULAR EVENT PROPHYLAXIS
     Dosage: 20 MG, 1X/DAY
     Route: 048
     Dates: start: 20070821, end: 20080207
  9. LIPITOR [Suspect]
     Active Substance: ATORVASTATIN CALCIUM
     Indication: BLOOD CHOLESTEROL INCREASED
     Dosage: 20 MG, 1X/DAY
     Route: 048
     Dates: start: 20130110, end: 20181001
  10. CALCIUM 500+D3 [Concomitant]
     Active Substance: CALCIUM CARBONATE\CHOLECALCIFEROL
     Dosage: 1000 MG, DAILY
     Route: 048
  11. ATENOLOL. [Concomitant]
     Active Substance: ATENOLOL
     Dosage: 1 DF, 1X/DAY
     Route: 048
  12. HYDROCHLOROTHIAZIDE. [Concomitant]
     Active Substance: HYDROCHLOROTHIAZIDE
     Dosage: 1 DF, 1X/DAY
     Route: 048
  13. DUTOPROL [Concomitant]
     Active Substance: HYDROCHLOROTHIAZIDE\METOPROLOL SUCCINATE
     Dosage: 1 DF, 2X/DAY (100MG/12,5 NG EXTENDED RELEASE 24HR)
  14. LEXAPRO [Concomitant]
     Active Substance: ESCITALOPRAM OXALATE
     Dosage: 1 DF, 1X/DAY
     Route: 048
  15. WELLBUTRIN [Concomitant]
     Active Substance: BUPROPION HYDROCHLORIDE
     Dosage: 100 MG, 2X/DAY
     Route: 048
  16. XANAX [Concomitant]
     Active Substance: ALPRAZOLAM
     Dosage: 0.25 MG, 3X/DAY (AS NEEDED)
     Route: 048
  17. ALBUTEROL. [Concomitant]
     Active Substance: ALBUTEROL
     Dosage: 2 PUFFS, BID (AEROSOL 90 MCG IH)
  18. PRINIVIL [Concomitant]
     Active Substance: LISINOPRIL
     Dosage: 1 DF, 1X/DAY
     Route: 048
  19. LIPITOR [Suspect]
     Active Substance: ATORVASTATIN CALCIUM
     Indication: LOW DENSITY LIPOPROTEIN INCREASED
     Dosage: UNK, AS DIRECTED
     Route: 048
  20. LIPITOR [Suspect]
     Active Substance: ATORVASTATIN CALCIUM
     Indication: BLOOD GLUCOSE INCREASED
  21. ASPIRIN. [Concomitant]
     Active Substance: ASPIRIN
     Dosage: 81 MG, DAILY (LOW DOSE ASPIRIN)
     Route: 048
  22. FLONASE [Concomitant]
     Active Substance: FLUTICASONE PROPIONATE
     Dosage: UNK UNK, DAILY UNK (2 SPRAYS IN EACH NOSTRIL) 50 MCG/ACTAUTION
  23. FLAGYL [Concomitant]
     Active Substance: METRONIDAZOLE\METRONIDAZOLE HYDROCHLORIDE
     Dosage: 1 DF, 3X/DAY
     Route: 048

REACTIONS (1)
  - Type 2 diabetes mellitus [Unknown]

NARRATIVE: CASE EVENT DATE: 20070821
